FAERS Safety Report 23799534 (Version 1)
Quarter: 2024Q2

REPORT INFORMATION
  Report Type: Spontaneous
  Country: US (occurrence: None)
  Receive Date: 20240428
  Receipt Date: 20240428
  Transmission Date: 20240716
  Serious: Yes (Disabling, Other)
  Sender: FDA-Public Use
  Company Number: None

PATIENT
  Age: 63 Year
  Sex: Female
  Weight: 90.9 kg

DRUGS (7)
  1. CAPECITABINE [Suspect]
     Active Substance: CAPECITABINE
     Indication: Breast cancer
     Dosage: FREQUENCY : TWICE A DAY;?
     Route: 048
     Dates: start: 20231229, end: 20240404
  2. LEVOTHYROXINE [Concomitant]
     Active Substance: LEVOTHYROXINE\LEVOTHYROXINE SODIUM
     Dates: start: 20240117
  3. Omeprazole 40mg capsule [Concomitant]
     Dates: start: 20240117
  4. Singulair 10mg tablet [Concomitant]
     Dates: start: 20240117
  5. INSULIN ASPART [Concomitant]
     Active Substance: INSULIN ASPART
     Dates: start: 20240117
  6. ATORVASTATIN [Concomitant]
     Active Substance: ATORVASTATIN
     Dates: start: 20240117
  7. LISINOPRIL [Concomitant]
     Active Substance: LISINOPRIL
     Dates: start: 20240117

REACTIONS (6)
  - Nausea [None]
  - Fatigue [None]
  - Fall [None]
  - Confusional state [None]
  - Hemiplegia [None]
  - Memory impairment [None]

NARRATIVE: CASE EVENT DATE: 20240404
